FAERS Safety Report 16916425 (Version 2)
Quarter: 2019Q4

REPORT INFORMATION
  Report Type: Report from Study
  Country: NL (occurrence: NL)
  Receive Date: 20191014
  Receipt Date: 20191113
  Transmission Date: 20200122
  Serious: Yes (Other)
  Sender: FDA-Public Use
  Company Number: NL-ARBOR PHARMACEUTICALS, LLC-NL-2019ARB001435

PATIENT
  Age: 77 Year
  Sex: Male

DRUGS (1)
  1. TRIPTODUR [Suspect]
     Active Substance: TRIPTORELIN
     Indication: PROSTATE CANCER
     Dosage: 11.25 MG, 1 IN 3 M
     Route: 030
     Dates: start: 20190612

REACTIONS (6)
  - Visual impairment [Not Recovered/Not Resolved]
  - Urinary retention [Recovering/Resolving]
  - Hot flush [Recovered/Resolved]
  - Pain in extremity [Unknown]
  - Depression [Recovered/Resolved]
  - Limb discomfort [Unknown]

NARRATIVE: CASE EVENT DATE: 2019
